FAERS Safety Report 4863146-X (Version None)
Quarter: 2005Q4

REPORT INFORMATION
  Report Type: 
  Country: None (occurrence: None)
  Receive Date: 20051201
  Receipt Date: 20051005
  Transmission Date: 20060501
  Serious: Yes (Other)
  Sender: FDA-Public Use
  Company Number: 2005-0008772

PATIENT
  Age: 8 Year
  Sex: Female
  Weight: 30 kg

DRUGS (4)
  1. TRUVADA [Suspect]
     Indication: HIV INFECTION
     Dosage: 1 DOSAGE FORMS, 1 IN 1 D, ORAL
     Route: 048
     Dates: start: 20041129
  2. KALETRA [Concomitant]
  3. ABACAVIR (ABACAVIR) [Concomitant]
  4. VIDEX EC [Concomitant]

REACTIONS (1)
  - HYPOPHOSPHATAEMIA [None]
